FAERS Safety Report 5137753-3 (Version None)
Quarter: 2006Q4

REPORT INFORMATION
  Report Type: 
  Country: None (occurrence: None)
  Receive Date: 20061030
  Receipt Date: 20060104
  Transmission Date: 20070319
  Serious: No
  Sender: FDA-Public Use
  Company Number: US-GLAXOSMITHKLINE-A0587740A

PATIENT
  Age: 59 Year
  Sex: Female

DRUGS (6)
  1. ADVAIR HFA [Suspect]
     Indication: ASTHMA
     Dosage: 1PUFF TWICE PER DAY
     Route: 055
  2. HORMONE [Concomitant]
  3. SINGULAIR [Concomitant]
  4. THYROID TAB [Concomitant]
  5. ALBUTEROL [Concomitant]
  6. NEBULIZER [Concomitant]

REACTIONS (3)
  - APHONIA [None]
  - FATIGUE [None]
  - VOCAL CORD POLYP [None]
